FAERS Safety Report 23135625 (Version 1)
Quarter: 2023Q4

REPORT INFORMATION
  Report Type: Spontaneous
  Country: NO (occurrence: NO)
  Receive Date: 20231101
  Receipt Date: 20231101
  Transmission Date: 20240110
  Serious: Yes (Other)
  Sender: FDA-Public Use
  Company Number: None

PATIENT
  Age: 62 Year
  Sex: Male

DRUGS (1)
  1. OZEMPIC [Suspect]
     Active Substance: SEMAGLUTIDE
     Indication: Type 2 diabetes mellitus
     Dosage: UNKNOWN DOSAGE REGIMEN. OZEMPIC WAS PRESCRIBED BY THE GP
     Route: 058
     Dates: start: 202208, end: 202309

REACTIONS (1)
  - Cachexia [Recovering/Resolving]

NARRATIVE: CASE EVENT DATE: 20220901
